FAERS Safety Report 24861062 (Version 1)
Quarter: 2025Q1

REPORT INFORMATION
  Report Type: Report from Study
  Country: BE (occurrence: BE)
  Receive Date: 20250120
  Receipt Date: 20250120
  Transmission Date: 20250408
  Serious: Yes (Hospitalization)
  Sender: ABBVIE
  Company Number: BE-ABBVIE-6092307

PATIENT

DRUGS (1)
  1. FOSCARBIDOPA\FOSLEVODOPA [Suspect]
     Active Substance: FOSCARBIDOPA\FOSLEVODOPA
     Indication: Product used for unknown indication
     Route: 058

REACTIONS (1)
  - Pneumonia [Unknown]
